FAERS Safety Report 14951902 (Version 1)
Quarter: 2018Q2

REPORT INFORMATION
  Report Type: Spontaneous
  Country: US (occurrence: US)
  Receive Date: 20180509
  Receipt Date: 20180509
  Transmission Date: 20180711
  Serious: No
  Sender: FDA-Public Use
  Company Number: None

PATIENT
  Age: 63 Year

DRUGS (1)
  1. NINLARO [Suspect]
     Active Substance: IXAZOMIB CITRATE
     Indication: PLASMA CELL MYELOMA
     Dosage: OTHER FREQUENCY:ONCE WEEKLY X 3 WE;THAN 1 WEEK OFF?
     Dates: start: 20180404

REACTIONS (2)
  - Hallucination [None]
  - Hypoaesthesia [None]

NARRATIVE: CASE EVENT DATE: 20180410
